FAERS Safety Report 18505931 (Version 3)
Quarter: 2020Q4

REPORT INFORMATION
  Report Type: Report from Study
  Country: US (occurrence: US)
  Receive Date: 20201116
  Receipt Date: 20201224
  Transmission Date: 20210114
  Serious: Yes (Other)
  Sender: FDA-Public Use
  Company Number: NVSC2020US302017

PATIENT
  Age: 53 Year
  Sex: Male

DRUGS (2)
  1. ENTRESTO [Suspect]
     Active Substance: SACUBITRIL\VALSARTAN
     Indication: PRODUCT USED FOR UNKNOWN INDICATION
     Dosage: 50 MG, BID (24/26MG)
     Route: 048
     Dates: start: 202007
  2. ENTRESTO [Suspect]
     Active Substance: SACUBITRIL\VALSARTAN
     Dosage: 100 MG, BID (49/51MG)
     Route: 048

REACTIONS (13)
  - Dyspnoea [Unknown]
  - Gait disturbance [Unknown]
  - Anxiety [Unknown]
  - Fatigue [Unknown]
  - Insomnia [Unknown]
  - Head discomfort [Unknown]
  - Depression [Unknown]
  - Drug ineffective [Unknown]
  - Nausea [Unknown]
  - Dizziness [Unknown]
  - Asthenia [Unknown]
  - Memory impairment [Unknown]
  - Product dose omission issue [Unknown]
